FAERS Safety Report 4879829-1 (Version None)
Quarter: 2006Q1

REPORT INFORMATION
  Report Type: 
  Country: None (occurrence: None)
  Receive Date: 20060113
  Receipt Date: 20060102
  Transmission Date: 20060701
  Serious: Yes (Hospitalization)
  Sender: FDA-Public Use
  Company Number: FR-JNJFOC-20050406698

PATIENT
  Age: 82 Year
  Sex: Female

DRUGS (15)
  1. ZALDIAR [Suspect]
     Indication: ARTHRALGIA
     Route: 048
  2. TAHOR [Suspect]
     Indication: HYPERLIPIDAEMIA
     Route: 048
  3. DIGOXIN [Concomitant]
     Indication: CARDIAC FLUTTER
     Route: 048
  4. DIGOXIN [Concomitant]
     Indication: ATRIAL FIBRILLATION
     Route: 048
  5. LANZOR [Concomitant]
     Route: 048
  6. PROPOFOL [Concomitant]
     Route: 065
  7. PROPOFOL [Concomitant]
     Route: 065
  8. PROPOFOL [Concomitant]
     Route: 065
  9. PROPOFOL [Concomitant]
     Route: 065
  10. PROPOFOL [Concomitant]
     Route: 065
  11. TRIATEC [Concomitant]
     Route: 065
  12. PREVISCAN [Concomitant]
     Route: 065
  13. LEVOTHYROXINE SODIUM [Concomitant]
     Route: 065
  14. TEMESTA [Concomitant]
     Route: 065
  15. PANOS [Concomitant]
     Route: 065

REACTIONS (4)
  - MALAISE [None]
  - NAUSEA [None]
  - TACHYARRHYTHMIA [None]
  - VERTIGO [None]
